FAERS Safety Report 8425701-X (Version None)
Quarter: 2012Q2

REPORT INFORMATION
  Report Type: 
  Country: None (occurrence: None)
  Receive Date: 20120611
  Receipt Date: 20120606
  Transmission Date: 20120825
  Serious: Yes (Disabling)
  Sender: FDA-Public Use
  Company Number: PHHY2012AU012679

PATIENT
  Sex: Female
  Weight: 63 kg

DRUGS (4)
  1. ZOLEDRONOC ACID [Suspect]
     Dosage: UNK UKN, UNK
     Route: 042
     Dates: start: 20100101
  2. ZOLPIDEM [Concomitant]
  3. COLOXYL [Concomitant]
  4. ZOLEDRONOC ACID [Suspect]
     Dosage: UNK UKN, UNK
     Route: 042
     Dates: start: 20110124

REACTIONS (2)
  - DERMATITIS [None]
  - CERUMEN IMPACTION [None]
